FAERS Safety Report 17955970 (Version 4)
Quarter: 2020Q4

REPORT INFORMATION
  Report Type: Spontaneous
  Country: US (occurrence: US)
  Receive Date: 20200629
  Receipt Date: 20201210
  Transmission Date: 20210113
  Serious: Yes (Other)
  Sender: FDA-Public Use
  Company Number: US-PFIZER INC-2020246566

PATIENT
  Age: 23 Year
  Sex: Female

DRUGS (3)
  1. XELJANZ [Suspect]
     Active Substance: TOFACITINIB CITRATE
     Dosage: 10 MG, 2X/DAY
     Route: 048
     Dates: start: 202009, end: 2020
  2. XELJANZ [Suspect]
     Active Substance: TOFACITINIB CITRATE
     Dosage: 5 MG, 2X/DAY
     Route: 048
     Dates: start: 202009
  3. XELJANZ [Suspect]
     Active Substance: TOFACITINIB CITRATE
     Indication: COLITIS ULCERATIVE
     Dosage: 10 MG, 2X/DAY
     Route: 048
     Dates: start: 20200623, end: 2020

REACTIONS (13)
  - Eating disorder [Unknown]
  - Sleep disorder [Unknown]
  - Illness [Unknown]
  - Emotional disorder [Unknown]
  - Condition aggravated [Unknown]
  - Haemorrhoids [Unknown]
  - Abdominal pain [Unknown]
  - Product dose omission issue [Unknown]
  - Fatigue [Not Recovered/Not Resolved]
  - Herpes zoster [Unknown]
  - Mucous stools [Unknown]
  - Haematochezia [Unknown]
  - Anxiety [Unknown]

NARRATIVE: CASE EVENT DATE: 2020
